FAERS Safety Report 17616590 (Version 1)
Quarter: 2020Q2

REPORT INFORMATION
  Report Type: Spontaneous
  Country: IT (occurrence: IT)
  Receive Date: 20200402
  Receipt Date: 20200402
  Transmission Date: 20200713
  Serious: Yes (Other)
  Sender: FDA-Public Use
  Company Number: IT-MYLANLABS-2020M1034120

PATIENT
  Sex: Female

DRUGS (4)
  1. 5-FLUOROURACIL                     /00098801/ [Suspect]
     Active Substance: FLUOROURACIL
     Indication: SIGNET-RING CELL CARCINOMA
     Route: 065
  2. PACLITAXEL. [Concomitant]
     Active Substance: PACLITAXEL
     Indication: SIGNET-RING CELL CARCINOMA
     Route: 065
     Dates: start: 2018, end: 201809
  3. CISPLATIN. [Suspect]
     Active Substance: CISPLATIN
     Indication: SIGNET-RING CELL CARCINOMA
     Dosage: WITH 75% DOSAGE
     Route: 065
  4. CYRAMZA [Concomitant]
     Active Substance: RAMUCIRUMAB
     Indication: SIGNET-RING CELL CARCINOMA
     Route: 065
     Dates: start: 2018, end: 2018

REACTIONS (1)
  - Gastrointestinal toxicity [Unknown]
